FAERS Safety Report 17893035 (Version 3)
Quarter: 2020Q3

REPORT INFORMATION
  Report Type: Spontaneous
  Country: DE (occurrence: DE)
  Receive Date: 20200613
  Receipt Date: 20200717
  Transmission Date: 20201103
  Serious: Yes (Hospitalization, Other)
  Sender: FDA-Public Use
  Company Number: NVSC2020DE164901

PATIENT
  Sex: Female
  Weight: 61 kg

DRUGS (3)
  1. CALCIUM [Concomitant]
     Active Substance: CALCIUM
     Indication: PRODUCT USED FOR UNKNOWN INDICATION
     Dosage: UNK
     Route: 065
  2. ACLASTA [Suspect]
     Active Substance: ZOLEDRONIC ACID
     Indication: OSTEOPOROSIS
     Dosage: 5 MG, Q12MO (ONCE A YEAR)
     Route: 042
     Dates: start: 20190926
  3. NEUREXAN [Concomitant]
     Active Substance: HOMEOPATHICS
     Indication: PRODUCT USED FOR UNKNOWN INDICATION
     Dosage: UNK
     Route: 065

REACTIONS (28)
  - Dysarthria [Recovered/Resolved]
  - Confusional state [Recovered/Resolved]
  - Gait disturbance [Not Recovered/Not Resolved]
  - Atrial fibrillation [Recovered/Resolved]
  - Myocardial infarction [Unknown]
  - Cerebral artery occlusion [Recovered/Resolved]
  - Pericardial effusion [Recovered/Resolved]
  - Tricuspid valve incompetence [Recovered/Resolved]
  - Balance disorder [Not Recovered/Not Resolved]
  - Carotid artery stenosis [Recovered/Resolved]
  - Facial paresis [Recovering/Resolving]
  - Hypertension [Unknown]
  - Arthralgia [Not Recovered/Not Resolved]
  - Embolic stroke [Recovered/Resolved]
  - Carotid arteriosclerosis [Unknown]
  - Asthenia [Unknown]
  - Carotid artery occlusion [Recovered/Resolved]
  - Aphasia [Recovering/Resolving]
  - Right atrial dilatation [Recovered/Resolved]
  - Dilatation atrial [Recovered/Resolved]
  - Myalgia [Recovering/Resolving]
  - Hemiparesis [Recovering/Resolving]
  - Left atrial dilatation [Recovered/Resolved]
  - Mitral valve incompetence [Recovered/Resolved]
  - General physical health deterioration [Recovered/Resolved]
  - Dizziness [Recovered/Resolved]
  - Malaise [Recovered/Resolved]
  - Bone pain [Recovering/Resolving]

NARRATIVE: CASE EVENT DATE: 20191006
